FAERS Safety Report 13102886 (Version 4)
Quarter: 2017Q1

REPORT INFORMATION
  Report Type: Report from Study
  Country: US (occurrence: US)
  Receive Date: 20170110
  Receipt Date: 20170321
  Transmission Date: 20170428
  Serious: Yes (Life-Threatening, Hospitalization)
  Sender: FDA-Public Use
  Company Number: US-ACTELION-A-NJ2016-146750

PATIENT
  Age: 11 Month
  Sex: Female

DRUGS (6)
  1. LASIX [Concomitant]
     Active Substance: FUROSEMIDE
     Dosage: 10 MG, QOD
  2. TRIAMCINOLONE [Concomitant]
     Active Substance: TRIAMCINOLONE
  3. SILDENAFIL. [Concomitant]
     Active Substance: SILDENAFIL
     Dosage: 17 MG, TID
  4. REMODULIN [Concomitant]
     Active Substance: TREPROSTINIL
     Dosage: 100 NG/KG, PER MIN
     Route: 058
  5. TRACLEER [Suspect]
     Active Substance: BOSENTAN
     Indication: PULMONARY ARTERIAL HYPERTENSION
     Dosage: 31.25 MG, BID
     Route: 048
     Dates: start: 20161004
  6. TRACLEER [Suspect]
     Active Substance: BOSENTAN
     Dosage: 30 MG, BID
     Route: 048
     Dates: start: 20161004

REACTIONS (7)
  - Acute respiratory failure [Recovered/Resolved]
  - Dyspnoea [Recovering/Resolving]
  - Oxygen saturation decreased [Recovered/Resolved]
  - Gastrostomy [Not Recovered/Not Resolved]
  - Pneumonia [Not Recovered/Not Resolved]
  - Nasopharyngitis [Recovering/Resolving]
  - Infection [Not Recovered/Not Resolved]

NARRATIVE: CASE EVENT DATE: 20161202
